FAERS Safety Report 13082062 (Version 1)
Quarter: 2017Q1

REPORT INFORMATION
  Report Type: Report from Study
  Country: ES (occurrence: ES)
  Receive Date: 20170103
  Receipt Date: 20170103
  Transmission Date: 20170428
  Serious: Yes (Death)
  Sender: FDA-Public Use
  Company Number: ES-PFIZER INC-2016603032

PATIENT

DRUGS (5)
  1. CAPECITABINE. [Suspect]
     Active Substance: CAPECITABINE
     Indication: RECTAL ADENOCARCINOMA
     Dosage: 1000 MG/M2, (1000 MG/M2/12 H D 1-14)
  2. BEVACIZUMAB [Suspect]
     Active Substance: BEVACIZUMAB
     Indication: RECTAL ADENOCARCINOMA
     Dosage: 7.5 MG/KG, CYCLIC (D 1)
  3. BEVACIZUMAB [Suspect]
     Active Substance: BEVACIZUMAB
     Dosage: 5 MG/KG, CYCLIC (THREE BIWEEKLY )
  4. OXALIPLATIN. [Suspect]
     Active Substance: OXALIPLATIN
     Indication: RECTAL ADENOCARCINOMA
     Dosage: 130 MG/M2, CYCLIC (D 1)
  5. CAPECITABINE. [Suspect]
     Active Substance: CAPECITABINE
     Dosage: 825 MG/M2, (825 MG/M2/12 H PLUS )

REACTIONS (2)
  - Diarrhoea [Fatal]
  - Diabetic ketoacidosis [Fatal]
